FAERS Safety Report 11533962 (Version 1)
Quarter: 2015Q3

REPORT INFORMATION
  Report Type: Spontaneous
  Country: US (occurrence: US)
  Receive Date: 20150922
  Receipt Date: 20150922
  Transmission Date: 20151125
  Serious: Yes (Hospitalization, Other)
  Sender: FDA-Public Use
  Company Number: US-HOSPIRA-3007938

PATIENT
  Age: 55 Year
  Sex: Female
  Weight: 69.3 kg

DRUGS (5)
  1. LIDOCAINE HYDROCHLORIDE. [Suspect]
     Active Substance: LIDOCAINE HYDROCHLORIDE
     Indication: ROTATOR CUFF SYNDROME
     Dosage: 3 ML IN LEFT HIP AND 2 ML IN LEFT SHOULDER, ONCE
     Route: 014
     Dates: start: 20150826, end: 20150826
  2. KENALOG [Suspect]
     Active Substance: TRIAMCINOLONE ACETONIDE
     Indication: LIGAMENT SPRAIN
     Dosage: 3 ML IN LEFT HIP AND 2 ML IN LEFT SHOULDER, ONCE
     Route: 014
     Dates: start: 20150826, end: 20150826
  3. XOPENEX [Concomitant]
     Active Substance: LEVALBUTEROL HYDROCHLORIDE
     Indication: ASTHMA
     Dosage: RESCUE INHALER
     Route: 055
  4. KENALOG [Suspect]
     Active Substance: TRIAMCINOLONE ACETONIDE
     Indication: ROTATOR CUFF SYNDROME
     Dosage: 3 ML IN LEFT HIP AND 2 ML IN LEFT SHOULDER, ONCE
     Route: 014
     Dates: start: 20150826, end: 20150826
  5. LIDOCAINE HYDROCHLORIDE. [Suspect]
     Active Substance: LIDOCAINE HYDROCHLORIDE
     Indication: LIGAMENT SPRAIN
     Dosage: 3 ML IN LEFT HIP AND 2 ML IN LEFT SHOULDER, ONCE
     Route: 014
     Dates: start: 20150826, end: 20150826

REACTIONS (13)
  - Rash [Recovered/Resolved]
  - Dizziness [Recovered/Resolved]
  - Lip swelling [Recovered/Resolved]
  - Renal disorder [Recovered/Resolved]
  - Pruritus [Recovered/Resolved]
  - Bradycardia [Recovered/Resolved]
  - Peripheral swelling [Recovered/Resolved]
  - Angioedema [Recovered/Resolved]
  - Ocular hyperaemia [Recovered/Resolved]
  - Paraesthesia oral [Recovered/Resolved]
  - Hypoaesthesia [Recovered/Resolved]
  - Blood pressure decreased [Recovered/Resolved]
  - Heart rate decreased [Recovered/Resolved]

NARRATIVE: CASE EVENT DATE: 20150826
